FAERS Safety Report 6866425-X (Version None)
Quarter: 2010Q3

REPORT INFORMATION
  Report Type: 
  Country: None (occurrence: None)
  Receive Date: 20100722
  Receipt Date: 20100719
  Transmission Date: 20110219
  Serious: Yes (Death, Life-Threatening, Hospitalization)
  Sender: FDA-Public Use
  Company Number: FR-BRISTOL-MYERS SQUIBB COMPANY-15199680

PATIENT
  Age: 94 Year
  Sex: Male

DRUGS (9)
  1. PRAVIGARD PAC (COPACKAGED) [Suspect]
     Dosage: 1 DF:1 TAB
     Route: 048
  2. COVERSYL [Concomitant]
  3. NEXIUM [Concomitant]
     Dosage: FORMULATION:TABS.
  4. XANAX [Concomitant]
  5. SERESTA [Concomitant]
     Dosage: FORMULATION:TABS.
  6. VASTAREL [Concomitant]
     Dosage: FORMULATION:TABS.
  7. DIFFU-K [Concomitant]
     Dosage: FORMULATION:CAPSULE,E508
  8. ZYLORIC [Concomitant]
     Dosage: FORMULATION:TAB.
  9. MAG 2 [Concomitant]

REACTIONS (4)
  - ATRIOVENTRICULAR BLOCK [None]
  - CEREBRAL HAEMATOMA [None]
  - HAEMORRHAGIC STROKE [None]
  - HYPERTENSION [None]
